FAERS Safety Report 8345458-0 (Version None)
Quarter: 2012Q2

REPORT INFORMATION
  Report Type: 
  Country: None (occurrence: None)
  Receive Date: 20120508
  Receipt Date: 20120501
  Transmission Date: 20120825
  Serious: Yes (Other)
  Sender: FDA-Public Use
  Company Number: US-BAYER-2012-042974

PATIENT
  Age: 32 Year
  Sex: Male
  Weight: 99.773 kg

DRUGS (1)
  1. MILK OF MAGNESIA TAB [Suspect]
     Indication: ABDOMINAL DISCOMFORT
     Dosage: 2 DF, ONCE, BOTTLE SIZE 12 OZ
     Route: 048
     Dates: start: 20120429

REACTIONS (1)
  - GASTRIC ULCER [None]
